FAERS Safety Report 24270070 (Version 1)
Quarter: 2024Q3

REPORT INFORMATION
  Report Type: Spontaneous
  Country: US (occurrence: None)
  Receive Date: 20240829
  Receipt Date: 20240829
  Transmission Date: 20241016
  Serious: No
  Sender: Public
  Company Number: None

PATIENT
  Age: 56 Year
  Sex: Female

DRUGS (1)
  1. COSENTYX [Suspect]
     Active Substance: SECUKINUMAB

REACTIONS (7)
  - Product communication issue [None]
  - Product dispensing error [None]
  - Drug titration error [None]
  - Inappropriate schedule of product administration [None]
  - Emotional distress [None]
  - Confusional state [None]
  - Psoriasis [None]
